FAERS Safety Report 21842977 (Version 1)
Quarter: 2023Q1

REPORT INFORMATION
  Report Type: Spontaneous
  Country: US (occurrence: None)
  Receive Date: 20230109
  Receipt Date: 20230109
  Transmission Date: 20230418
  Serious: Yes (Other)
  Sender: FDA-Public Use
  Company Number: None

PATIENT
  Age: 59 Year
  Sex: Male

DRUGS (4)
  1. ENBREL [Suspect]
     Active Substance: ETANERCEPT
     Indication: Ankylosing spondylitis
     Dosage: FREQUENCY : WEEKLY;?
     Route: 058
     Dates: start: 20220412
  2. ARMOUR THYRO TAB 30MG [Concomitant]
  3. LUNESTA TAB 2MG [Concomitant]
  4. PRILOSEC OTC TAB 20MG [Concomitant]

REACTIONS (2)
  - Coronary arterial stent insertion [None]
  - Blood cholesterol increased [None]

NARRATIVE: CASE EVENT DATE: 20221130
